FAERS Safety Report 5941491-4 (Version None)
Quarter: 2008Q4

REPORT INFORMATION
  Report Type: 
  Country: None (occurrence: None)
  Receive Date: 20081105
  Receipt Date: 20081024
  Transmission Date: 20090506
  Serious: Yes (Other)
  Sender: FDA-Public Use
  Company Number: US-ROCHE-592059

PATIENT
  Sex: Male
  Weight: 78.9 kg

DRUGS (2)
  1. CAPECITABINE [Suspect]
     Route: 048
     Dates: start: 20060615, end: 20080801
  2. CHEMOTHERAPY [Concomitant]
     Dosage: FORM REPORTED AS: INFUSION
     Route: 065
     Dates: start: 20080814

REACTIONS (1)
  - HEPATIC CANCER METASTATIC [None]
